FAERS Safety Report 5892051-5 (Version None)
Quarter: 2008Q3

REPORT INFORMATION
  Report Type: 
  Country: None (occurrence: None)
  Receive Date: 20080922
  Receipt Date: 20080903
  Transmission Date: 20090109
  Serious: No
  Sender: FDA-Public Use
  Company Number: US-B.I. PHARMACEUTICALS,INC./RIDGEFIELD-2008-BP-14162BP

PATIENT
  Sex: Male

DRUGS (1)
  1. RANITIDINE (RANITIDINE HYDROCHLORIDE) 75 MG [Suspect]
     Indication: NAUSEA
     Dosage: 150MG
     Route: 048
     Dates: start: 20080901

REACTIONS (2)
  - DYSPEPSIA [None]
  - OESOPHAGEAL PAIN [None]
